FAERS Safety Report 16243606 (Version 1)
Quarter: 2019Q2

REPORT INFORMATION
  Report Type: Spontaneous
  Country: US (occurrence: US)
  Receive Date: 20190425
  Receipt Date: 20190425
  Transmission Date: 20190711
  Serious: Yes (Hospitalization)
  Sender: FDA-Public Use
  Company Number: None

PATIENT
  Age: 39 Year
  Sex: Female

DRUGS (3)
  1. CAPECITABINE. [Suspect]
     Active Substance: CAPECITABINE
     Indication: BREAST CANCER FEMALE
     Dosage: ?          OTHER FREQUENCY:BID X14D Q 21 DAYS;?
     Route: 048
     Dates: start: 20180830
  2. VERZENIA [Concomitant]
     Dates: start: 20190422
  3. TYKERB [Suspect]
     Active Substance: LAPATINIB DITOSYLATE
     Indication: BREAST CANCER FEMALE
     Route: 048
     Dates: start: 20180623, end: 20190422

REACTIONS (1)
  - Liver disorder [None]

NARRATIVE: CASE EVENT DATE: 20190422
